FAERS Safety Report 4788634-6 (Version None)
Quarter: 2005Q4

REPORT INFORMATION
  Report Type: 
  Country: None (occurrence: None)
  Receive Date: 20051005
  Receipt Date: 20050930
  Transmission Date: 20060501
  Serious: Yes (Death, Hospitalization)
  Sender: FDA-Public Use
  Company Number: JPKYO-S-20050027

PATIENT
  Age: 72 Year
  Sex: Male

DRUGS (9)
  1. NAVELBINE [Suspect]
     Dosage: 80MG CUMULATIVE DOSE
     Route: 042
     Dates: start: 20050426, end: 20050524
  2. RADIATION [Suspect]
     Dosage: 48GY CUMULATIVE DOSE
     Dates: start: 20050426, end: 20050603
  3. ASPIRIN [Concomitant]
     Dates: start: 19970101, end: 20050702
  4. OMEPRAZOLE [Concomitant]
     Dates: start: 20030101, end: 20050702
  5. URINORM [Concomitant]
     Dates: start: 20030101, end: 20050702
  6. LIPITOR [Concomitant]
     Dates: start: 20030101, end: 20050702
  7. CONIEL [Concomitant]
     Dates: start: 20030101, end: 20050702
  8. ALFAROL [Concomitant]
     Dates: start: 20030101, end: 20050702
  9. CIPROXAN [Concomitant]
     Dates: start: 20030101, end: 20050702

REACTIONS (6)
  - C-REACTIVE PROTEIN INCREASED [None]
  - DIFFUSE ALVEOLAR DAMAGE [None]
  - HYPOXIA [None]
  - INTERSTITIAL LUNG DISEASE [None]
  - PYREXIA [None]
  - WHITE BLOOD CELL COUNT INCREASED [None]
